FAERS Safety Report 9009042 (Version 1)
Quarter: 2013Q1

REPORT INFORMATION
  Report Type: Report from Study
  Country: US (occurrence: US)
  Receive Date: 20130111
  Receipt Date: 20130111
  Transmission Date: 20140127
  Serious: No
  Sender: FDA-Public Use
  Company Number: US-VERTEX PHARMACEUTICALS INC.-2013-000464

PATIENT
  Sex: Male

DRUGS (11)
  1. VX-950 (TELAPREVIR) [Suspect]
     Indication: HEPATITIS C
     Dosage: 750 MG, TID
     Route: 048
  2. PEGASYS [Suspect]
     Indication: HEPATITIS C
     Dosage: 180 ?G, UNK
     Route: 058
  3. RIBAVIRIN [Suspect]
     Dosage: 200 MG, UNK
  4. CYMBALTA [Concomitant]
     Dosage: 20 MG, UNK
  5. SINGULAIR [Concomitant]
     Dosage: 10 MG, UNK
  6. VICODIN [Concomitant]
  7. HYDROXYZINE HCL [Concomitant]
     Dosage: 10 MG, UNK
  8. MIDRIN [Concomitant]
  9. AMITRIPTYLIN [Concomitant]
     Dosage: 10 MG, UNK
  10. HYDROCORT [Concomitant]
     Route: 061
  11. PRAMACORT [Concomitant]

REACTIONS (6)
  - Depression [Unknown]
  - Headache [Unknown]
  - Pruritus [Unknown]
  - Nausea [Unknown]
  - Vomiting [Unknown]
  - Haemorrhoids [Unknown]
